FAERS Safety Report 12424409 (Version 1)
Quarter: 2016Q2

REPORT INFORMATION
  Report Type: Spontaneous
  Country: US (occurrence: None)
  Receive Date: 20160531
  Receipt Date: 20160531
  Transmission Date: 20160815
  Serious: Yes (Hospitalization)
  Sender: FDA-Public Use
  Company Number: None

PATIENT
  Age: 86 Year
  Sex: Male
  Weight: 82.6 kg

DRUGS (2)
  1. TAXOL [Suspect]
     Active Substance: PACLITAXEL
     Dates: end: 20160426
  2. CARBOPLATIN. [Suspect]
     Active Substance: CARBOPLATIN
     Dates: end: 20160426

REACTIONS (3)
  - Brain natriuretic peptide increased [None]
  - Dyspnoea [None]
  - Oxygen saturation decreased [None]

NARRATIVE: CASE EVENT DATE: 20160523
